FAERS Safety Report 5031046-0 (Version None)
Quarter: 2006Q2

REPORT INFORMATION
  Report Type: 
  Country: None (occurrence: None)
  Receive Date: 20060619
  Receipt Date: 20060619
  Transmission Date: 20061013
  Serious: Yes (Hospitalization)
  Sender: FDA-Public Use
  Company Number: None

PATIENT
  Sex: Male
  Weight: 93.8946 kg

DRUGS (8)
  1. XELODA [Suspect]
     Indication: TESTICULAR CANCER METASTATIC
     Dosage: 1500 MG/M2 BID DAYS 1-7 AND 15-21
     Dates: start: 20060608
  2. XELODA [Suspect]
     Indication: TESTICULAR CANCER METASTATIC
     Dosage: 1500 MG/M2 BID DAYS 1-7 AND 15-21
     Dates: start: 20060609
  3. XELODA [Suspect]
     Indication: TESTICULAR CANCER METASTATIC
     Dosage: 1500 MG/M2 BID DAYS 1-7 AND 15-21
     Dates: start: 20060610
  4. XELODA [Suspect]
     Indication: TESTICULAR CANCER METASTATIC
     Dosage: 1500 MG/M2 BID DAYS 1-7 AND 15-21
     Dates: start: 20060611
  5. ZOFRAN [Concomitant]
  6. IMODIUM [Concomitant]
  7. PREVACID [Concomitant]
  8. BENTYL [Concomitant]

REACTIONS (4)
  - DIARRHOEA [None]
  - NAUSEA [None]
  - PAIN [None]
  - VOMITING [None]
